FAERS Safety Report 7378805-7 (Version None)
Quarter: 2011Q1

REPORT INFORMATION
  Report Type: 
  Country: None (occurrence: None)
  Receive Date: 20110317
  Receipt Date: 20110203
  Transmission Date: 20110831
  Serious: Yes (Hospitalization)
  Sender: FDA-Public Use
  Company Number: CIP11000686

PATIENT
  Sex: Female

DRUGS (2)
  1. ENABLEX [Suspect]
     Dosage: 7.5 MG, ORAL
     Route: 048
  2. PANTOPRAZOLE SODIUM [Concomitant]

REACTIONS (9)
  - MOOD ALTERED [None]
  - HEADACHE [None]
  - CONSTIPATION [None]
  - IRRITABILITY [None]
  - NERVOUSNESS [None]
  - ABDOMINAL PAIN [None]
  - ENTEROCOLITIS INFECTIOUS [None]
  - CONDITION AGGRAVATED [None]
  - URINARY INCONTINENCE [None]
